FAERS Safety Report 11772965 (Version 1)
Quarter: 2015Q4

REPORT INFORMATION
  Report Type: Spontaneous
  Country: GR (occurrence: GR)
  Receive Date: 20151124
  Receipt Date: 20151124
  Transmission Date: 20160304
  Serious: Yes (Other)
  Sender: FDA-Public Use
  Company Number: GR-BAXTER-2015BAX062012

PATIENT
  Age: 27 Year
  Sex: Male

DRUGS (3)
  1. UROMITEXAN 400 MG /4ML [Suspect]
     Active Substance: MESNA
     Indication: PERIPHERAL NERVE SHEATH TUMOUR MALIGNANT
     Route: 065
     Dates: start: 20150427, end: 20150720
  2. HOLOXAN 1000 MG - POWDER FOR SOLUTION FOR INFUSION [Suspect]
     Active Substance: IFOSFAMIDE
     Indication: PERIPHERAL NERVE SHEATH TUMOUR MALIGNANT
     Dosage: 3 G/M2, DAY 1-3
     Route: 065
     Dates: start: 20150427, end: 20150720
  3. EPIRUBICIN HCL [Suspect]
     Active Substance: EPIRUBICIN HYDROCHLORIDE
     Indication: PERIPHERAL NERVE SHEATH TUMOUR MALIGNANT
     Dosage: DAY 1-2
     Route: 065
     Dates: start: 20150427, end: 20150720

REACTIONS (2)
  - Metastases to bone [Unknown]
  - Malignant neoplasm progression [Unknown]

NARRATIVE: CASE EVENT DATE: 20150624
